FAERS Safety Report 11754805 (Version 2)
Quarter: 2015Q4

REPORT INFORMATION
  Report Type: Report from Study
  Country: US (occurrence: US)
  Receive Date: 20151119
  Receipt Date: 20151204
  Transmission Date: 20160304
  Serious: Yes (Hospitalization)
  Sender: FDA-Public Use
  Company Number: US-VERTEX PHARMACEUTICALS-2015-003486

PATIENT
  Sex: Male

DRUGS (1)
  1. ORKAMBI [Suspect]
     Active Substance: IVACAFTOR\LUMACAFTOR
     Indication: CYSTIC FIBROSIS
     Dosage: UNK UNK, BID
     Route: 048
     Dates: start: 20150821

REACTIONS (11)
  - Hyponatraemia [Unknown]
  - Haemorrhage [Unknown]
  - Cough [Not Recovered/Not Resolved]
  - Sinusitis [Unknown]
  - Lung infection [Unknown]
  - Haemoptysis [Recovered/Resolved]
  - Fatigue [Unknown]
  - Cystic fibrosis respiratory infection suppression [Recovered/Resolved]
  - Dyspnoea [Unknown]
  - Pulmonary function test decreased [Recovering/Resolving]
  - Nasopharyngitis [Not Recovered/Not Resolved]
